FAERS Safety Report 12596146 (Version 2)
Quarter: 2017Q1

REPORT INFORMATION
  Report Type: Report from Study
  Country: US (occurrence: US)
  Receive Date: 20160726
  Receipt Date: 20170126
  Transmission Date: 20170428
  Serious: No
  Sender: FDA-Public Use
  Company Number: US-AMGEN-USASL2016077910

PATIENT
  Age: 71 Year
  Sex: Female

DRUGS (4)
  1. DEXAMETHASONE. [Concomitant]
     Active Substance: DEXAMETHASONE
     Dosage: 20 MG, UNK
  2. KYPROLIS [Suspect]
     Active Substance: CARFILZOMIB
     Dosage: 27 MG/M2, UNK
     Route: 065
     Dates: start: 20160707
  3. KYPROLIS [Suspect]
     Active Substance: CARFILZOMIB
     Indication: PLASMA CELL MYELOMA
     Dosage: TWICE WEEKLY FOR THREE WEEKS THEN HAS A WEEK OFF
     Route: 065
     Dates: start: 20160614
  4. LENALIDOMIDE [Concomitant]
     Active Substance: LENALIDOMIDE
     Dosage: UNK

REACTIONS (8)
  - Headache [Unknown]
  - Depressed mood [Unknown]
  - Tremor [Unknown]
  - Peripheral swelling [Recovered/Resolved]
  - Mobility decreased [Unknown]
  - Feeling abnormal [Unknown]
  - Joint swelling [Recovered/Resolved]
  - Asthenia [Unknown]

NARRATIVE: CASE EVENT DATE: 2016
